FAERS Safety Report 6557771-8 (Version None)
Quarter: 2010Q1

REPORT INFORMATION
  Report Type: 
  Country: None (occurrence: None)
  Receive Date: 20100129
  Receipt Date: 20100121
  Transmission Date: 20100710
  Serious: Yes (Other)
  Sender: FDA-Public Use
  Company Number: FR-ASTRAZENECA-2010SE03248

PATIENT
  Age: 67 Year
  Sex: Male

DRUGS (11)
  1. CRESTOR [Suspect]
     Indication: HYPERCHOLESTEROLAEMIA
     Route: 048
  2. PLAVIX [Concomitant]
     Route: 048
  3. LODOZ [Concomitant]
     Route: 048
  4. COVERSYL [Concomitant]
     Route: 048
  5. ADANCOR [Concomitant]
     Route: 048
  6. NITROGLYCERIN [Concomitant]
     Dosage: 1 TO 4 INHALATION PER DAY
     Route: 065
  7. PARIET [Concomitant]
     Route: 065
  8. GAVISCON [Concomitant]
     Route: 065
  9. VICTAN [Concomitant]
     Route: 065
  10. ACETAMINOPHEN WITH PROPOXYPHENE HCL TAB [Concomitant]
     Dosage: 2 TO TABLETS PER DAY
     Route: 065
  11. TRIMEBUTINE [Concomitant]
     Route: 065

REACTIONS (1)
  - RETINAL DETACHMENT [None]
